FAERS Safety Report 18891666 (Version 2)
Quarter: 2021Q1

REPORT INFORMATION
  Report Type: Spontaneous
  Country: IT (occurrence: IT)
  Receive Date: 20210215
  Receipt Date: 20210217
  Transmission Date: 20210420
  Serious: Yes (Other)
  Sender: FDA-Public Use
  Company Number: IT-TEVA-2021-IT-1878847

PATIENT
  Age: 80 Year
  Sex: Male

DRUGS (3)
  1. CARBAMAZEPINE. [Suspect]
     Active Substance: CARBAMAZEPINE
     Indication: MEDICATION ERROR
     Dosage: 400 MG
     Route: 048
     Dates: start: 20210118, end: 20210118
  2. DEPAKIN [Suspect]
     Active Substance: VALPROATE SODIUM
     Dosage: 500 MG
     Route: 048
     Dates: start: 20210118, end: 20210118
  3. DINTOINA [Suspect]
     Active Substance: PHENYTOIN SODIUM
     Indication: MEDICATION ERROR
     Dosage: 100 MG
     Route: 048
     Dates: start: 20210118, end: 20210118

REACTIONS (3)
  - Depressed level of consciousness [Recovered/Resolved]
  - Sopor [Recovered/Resolved]
  - Wrong dose [Recovered/Resolved]

NARRATIVE: CASE EVENT DATE: 20210119
